FAERS Safety Report 9924266 (Version 2)
Quarter: 2014Q1

REPORT INFORMATION
  Report Type: Spontaneous
  Country: AU (occurrence: AU)
  Receive Date: 20140226
  Receipt Date: 20140226
  Transmission Date: 20141002
  Serious: Yes (Death, Other)
  Sender: FDA-Public Use
  Company Number: AU-AMGEN-AUSSP2014002416

PATIENT
  Age: 81 Year
  Sex: Male

DRUGS (2)
  1. XGEVA [Suspect]
     Indication: METASTASES TO BONE
     Dosage: 120 MG, Q4WK
     Route: 058
     Dates: start: 20130718, end: 20140216
  2. XGEVA [Suspect]
     Indication: PROSTATE CANCER METASTATIC

REACTIONS (7)
  - Brain neoplasm [Unknown]
  - Pulmonary oedema [Unknown]
  - Neoplasm [Unknown]
  - Neoplasm malignant [Fatal]
  - Fall [Unknown]
  - Upper limb fracture [Recovering/Resolving]
  - Contusion [Recovering/Resolving]
